FAERS Safety Report 6094189-9 (Version None)
Quarter: 2009Q1

REPORT INFORMATION
  Report Type: 
  Country: None (occurrence: None)
  Receive Date: 20090224
  Receipt Date: 20090224
  Transmission Date: 20090719
  Serious: Yes (Other)
  Sender: FDA-Public Use
  Company Number: None

PATIENT
  Age: 72 Year
  Sex: Male
  Weight: 102.0593 kg

DRUGS (1)
  1. VALTREX [Suspect]
     Indication: VIRAL LABYRINTHITIS
     Dosage: 1 TABLET 4 TIMES A DAY
     Dates: start: 20080429, end: 20080502

REACTIONS (3)
  - AGGRESSION [None]
  - HALLUCINATION [None]
  - PARANOIA [None]
